FAERS Safety Report 8133903-5 (Version None)
Quarter: 2012Q1

REPORT INFORMATION
  Report Type: 
  Country: None (occurrence: None)
  Receive Date: 20120213
  Receipt Date: 20120207
  Transmission Date: 20120608
  Serious: Yes (Hospitalization, Other)
  Sender: FDA-Public Use
  Company Number: US-ASTRAZENECA-2011SE16815

PATIENT
  Age: 55 Year
  Sex: Male
  Weight: 136.1 kg

DRUGS (17)
  1. HYDROCODONE [Concomitant]
     Indication: PAIN
  2. NORVASC [Concomitant]
  3. CITALOPRAM HYDROBROMIDE [Concomitant]
  4. COUMADIN [Concomitant]
     Dosage: 4 MG MWF AND 3.5 MG ALL DAYS
  5. METOPROLOL SUCCINATE [Concomitant]
     Indication: BLOOD PRESSURE ABNORMAL
  6. LANTUS [Concomitant]
     Indication: DIABETES MELLITUS
  7. DEXILANT [Concomitant]
     Indication: DYSPEPSIA
  8. HYDROCHLOROTHIAZIDE [Concomitant]
     Indication: FLUID RETENTION
  9. RISTRIL [Concomitant]
  10. SEROQUEL [Suspect]
     Indication: SCHIZOPHRENIA
     Route: 048
     Dates: start: 20070101
  11. TRAZODONE HCL [Concomitant]
     Indication: SUICIDAL IDEATION
  12. HUMULIN R [Concomitant]
     Indication: BLOOD INSULIN
     Dosage: DAILY
  13. SOMA [Concomitant]
     Indication: MUSCLE SPASMS
  14. OMEPRAZOLE [Concomitant]
     Indication: GASTROOESOPHAGEAL REFLUX DISEASE
  15. GLIMEPIRIDE [Concomitant]
     Indication: BLOOD INSULIN
  16. SEROQUEL [Suspect]
     Indication: PSYCHOTIC DISORDER
     Route: 048
     Dates: start: 20070101
  17. TAMZOPAM [Concomitant]
     Indication: SLEEP DISORDER

REACTIONS (8)
  - DIVERTICULITIS [None]
  - HALLUCINATION, AUDITORY [None]
  - DRUG DOSE OMISSION [None]
  - CONVULSION [None]
  - URINARY TRACT INFECTION [None]
  - BLOOD GLUCOSE INCREASED [None]
  - INCORRECT DOSE ADMINISTERED [None]
  - ASOCIAL BEHAVIOUR [None]
